FAERS Safety Report 9641465 (Version 1)
Quarter: 2013Q4

REPORT INFORMATION
  Report Type: Spontaneous
  Country: US (occurrence: US)
  Receive Date: 20131023
  Receipt Date: 20131023
  Transmission Date: 20140711
  Serious: No
  Sender: FDA-Public Use
  Company Number: US-ABBVIE-13P-163-1151419-00

PATIENT
  Age: 40 Year
  Sex: Female

DRUGS (1)
  1. LUPRON DEPOT [Suspect]
     Indication: ENDOMETRIOSIS
     Route: 050
     Dates: start: 1990, end: 1990

REACTIONS (2)
  - Blood calcium increased [Not Recovered/Not Resolved]
  - Parathyroid disorder [Not Recovered/Not Resolved]
